FAERS Safety Report 4915198-6 (Version None)
Quarter: 2006Q1

REPORT INFORMATION
  Report Type: 
  Country: None (occurrence: None)
  Receive Date: 20060216
  Receipt Date: 20060216
  Transmission Date: 20060701
  Serious: Yes (Hospitalization)
  Sender: FDA-Public Use
  Company Number: None

PATIENT
  Sex: Female
  Weight: 62.5964 kg

DRUGS (5)
  1. ARIMIDEX [Suspect]
     Indication: NEOPLASM MALIGNANT
     Dosage: PO, PRIOR TO ADMISSION
     Route: 048
  2. HERCEPTIN [Suspect]
     Indication: NEOPLASM MALIGNANT
     Dosage: PRIOR TO ADMISSION
  3. ACCUZYME OINT [Concomitant]
  4. HYDROCHLOROTHIAZIDE [Concomitant]
  5. PREDNISONE [Concomitant]

REACTIONS (6)
  - ADVERSE DRUG REACTION [None]
  - BURNING SENSATION [None]
  - FLUSHING [None]
  - HOT FLUSH [None]
  - HYPOAESTHESIA [None]
  - JAW DISORDER [None]
